FAERS Safety Report 21063150 (Version 1)
Quarter: 2022Q3

REPORT INFORMATION
  Report Type: Spontaneous
  Country: IT (occurrence: IT)
  Receive Date: 20220711
  Receipt Date: 20220711
  Transmission Date: 20221027
  Serious: Yes (Other)
  Sender: FDA-Public Use
  Company Number: IT-LFM-220199

PATIENT
  Sex: Male

DRUGS (2)
  1. RISPERIDONE [Suspect]
     Active Substance: RISPERIDONE
     Indication: Schizoaffective disorder
     Dosage: UNK
     Route: 065
  2. LITHIUM [Suspect]
     Active Substance: LITHIUM
     Indication: Schizoaffective disorder
     Dosage: 900 MILLIGRAM, ONCE A DAY
     Route: 065

REACTIONS (1)
  - Impaired self-care [Recovered/Resolved]
